FAERS Safety Report 22622690 (Version 2)
Quarter: 2023Q4

REPORT INFORMATION
  Report Type: Report from Study
  Country: IT (occurrence: IT)
  Receive Date: 20230621
  Receipt Date: 20231006
  Transmission Date: 20240110
  Serious: Yes (Other)
  Sender: FDA-Public Use
  Company Number: IT-ABBVIE-5298036

PATIENT
  Age: 66 Year
  Sex: Male

DRUGS (2)
  1. CARBIDOPA\LEVODOPA [Suspect]
     Active Substance: CARBIDOPA\LEVODOPA
     Indication: Parkinson^s disease
     Dosage: DAILY DOSE (MG): 1492; PUMP SETTING: MD: 10+3; CR: 3,6; ED: 3,5
     Route: 050
     Dates: start: 20210125
  2. CARBIDOPA\LEVODOPA [Suspect]
     Active Substance: CARBIDOPA\LEVODOPA

REACTIONS (3)
  - Embedded device [Recovered/Resolved]
  - Unevaluable event [Recovering/Resolving]
  - Stoma site reaction [Recovering/Resolving]

NARRATIVE: CASE EVENT DATE: 20230601
